FAERS Safety Report 15748875 (Version 1)
Quarter: 2018Q4

REPORT INFORMATION
  Report Type: Spontaneous
  Country: US (occurrence: US)
  Receive Date: 20181221
  Receipt Date: 20181221
  Transmission Date: 20190205
  Serious: No
  Sender: FDA-Public Use
  Company Number: US-RECKITT BENCKISER HEALTHCARE INT LIMITED-RB-87912-2018

PATIENT
  Age: 34 Year
  Sex: Female

DRUGS (3)
  1. DELSYM [Suspect]
     Active Substance: DEXTROMETHORPHAN
     Indication: COUGH
     Dosage: 10 ML, SINGLE
     Route: 065
     Dates: start: 20180529
  2. VENTOLIN [Concomitant]
     Active Substance: ALBUTEROL SULFATE
     Indication: DISCOMFORT
     Dosage: UNK
     Route: 065
  3. ADVIL [Suspect]
     Active Substance: IBUPROFEN
     Indication: PRODUCT USED FOR UNKNOWN INDICATION
     Dosage: UNK
     Route: 065

REACTIONS (2)
  - Dyspnoea [Recovered/Resolved]
  - Obstructive airways disorder [Recovered/Resolved]

NARRATIVE: CASE EVENT DATE: 20180529
